FAERS Safety Report 7527871-4 (Version None)
Quarter: 2011Q2

REPORT INFORMATION
  Report Type: 
  Country: None (occurrence: None)
  Receive Date: 20110607
  Receipt Date: 20110602
  Transmission Date: 20111010
  Serious: Yes (Death)
  Sender: FDA-Public Use
  Company Number: AT-ASTELLAS-2011US002619

PATIENT
  Age: 39 Year
  Sex: Male

DRUGS (7)
  1. AMBISOME [Suspect]
     Indication: FUNGAL INFECTION
     Dosage: 300 MG, UID/QD
     Route: 042
     Dates: start: 20110428, end: 20110518
  2. NITRAZEPAM [Concomitant]
     Indication: PRODUCT USED FOR UNKNOWN INDICATION
     Dosage: 7.5 MG/HOUR, OTHER
     Route: 042
     Dates: start: 20110415, end: 20110518
  3. SUFENTA PRESERVATIVE FREE [Concomitant]
     Indication: ANALGESIC THERAPY
     Dosage: 100 UG/HOUR, OTHER
     Route: 042
     Dates: start: 20110415, end: 20110518
  4. MAXIPIME [Concomitant]
     Indication: PSEUDOMONAS INFECTION
     Dosage: 2 G, TID
     Route: 042
     Dates: start: 20110515, end: 20110518
  5. LOVENOX [Concomitant]
     Indication: THROMBOSIS PROPHYLAXIS
     Dosage: 60 MG, BID
     Route: 058
     Dates: start: 20110515, end: 20110518
  6. ARTERENOL [Concomitant]
     Indication: CARDIOVASCULAR INSUFFICIENCY
     Dosage: 0.2 UG/KG/MIN, UID/QD
     Route: 042
     Dates: start: 20110415, end: 20110518
  7. PANTOPRAZOLE SODIUM [Concomitant]
     Indication: PRODUCT USED FOR UNKNOWN INDICATION
     Dosage: 40 MG, BID
     Route: 042
     Dates: start: 20110415, end: 20110518

REACTIONS (2)
  - BLOOD POTASSIUM INCREASED [None]
  - CARDIAC ARREST [None]
